FAERS Safety Report 25548803 (Version 1)
Quarter: 2025Q3

REPORT INFORMATION
  Report Type: Other
  Country: EU (occurrence: EU)
  Receive Date: 20250714
  Receipt Date: 20250714
  Transmission Date: 20251020
  Serious: Yes (Death, Hospitalization, Other)
  Sender: ANI
  Company Number: EU-ANIPHARMA-023520

PATIENT
  Age: 61 Year
  Sex: Female

DRUGS (3)
  1. CYCLOPHOSPHAMIDE [Suspect]
     Active Substance: CYCLOPHOSPHAMIDE
     Indication: Hepatosplenic T-cell lymphoma
  2. DOXORUBICIN [Concomitant]
     Active Substance: DOXORUBICIN
     Indication: Hepatosplenic T-cell lymphoma
  3. ETOPOSIDE [Concomitant]
     Active Substance: ETOPOSIDE
     Indication: Hepatosplenic T-cell lymphoma

REACTIONS (7)
  - Aspergillus infection [Fatal]
  - Febrile neutropenia [Not Recovered/Not Resolved]
  - Staphylococcal bacteraemia [Recovered/Resolved]
  - Neutropenic colitis [Recovered/Resolved]
  - Enterococcal infection [Recovered/Resolved]
  - Bronchopulmonary aspergillosis [Fatal]
  - Fungal infection [Fatal]
